FAERS Safety Report 8845075 (Version 1)
Quarter: 2012Q4

REPORT INFORMATION
  Report Type: 
  Country: US (occurrence: US)
  Receive Date: 20121017
  Receipt Date: 20121017
  Transmission Date: 20130627
  Serious: Yes (Hospitalization)
  Sender: FDA-Public Use
  Company Number: US-INCYTE CORPORATION-2012IN000727

PATIENT
  Age: 67 None
  Sex: Female

DRUGS (10)
  1. JAKAFI [Suspect]
     Indication: MYELOFIBROSIS
     Dosage: 15 mg, bid
     Route: 048
     Dates: start: 20120410, end: 2012
  2. JAKAFI [Suspect]
     Dosage: 10 mg AM, 5 mg PM, qd
     Route: 048
     Dates: start: 20120928
  3. TRAMADOL [Concomitant]
  4. LEXAPRO [Concomitant]
  5. CYPROHEPTADINE [Concomitant]
  6. COUMADIN [Concomitant]
  7. ESTRACE [Concomitant]
  8. PERCOCET [Concomitant]
  9. ZOFRAN [Concomitant]
  10. OXYCODONE [Concomitant]

REACTIONS (4)
  - Surgery [Unknown]
  - Bone pain [Unknown]
  - Musculoskeletal pain [Unknown]
  - Anaemia [Unknown]
